FAERS Safety Report 14816662 (Version 2)
Quarter: 2018Q2

REPORT INFORMATION
  Report Type: Spontaneous
  Country: JP (occurrence: JP)
  Receive Date: 20180426
  Receipt Date: 20180619
  Transmission Date: 20180711
  Serious: Yes (Other)
  Sender: FDA-Public Use
  Company Number: JP-EISAI MEDICAL RESEARCH-EC-2018-038232

PATIENT
  Age: 76 Year
  Sex: Male

DRUGS (2)
  1. LENVIMA [Suspect]
     Active Substance: LENVATINIB
     Indication: HEPATOCELLULAR CARCINOMA
     Route: 048
     Dates: start: 20180416, end: 20180417
  2. LENVIMA [Suspect]
     Active Substance: LENVATINIB
     Route: 048
     Dates: start: 20180525, end: 20180611

REACTIONS (6)
  - Hepatic encephalopathy [Unknown]
  - Incontinence [Unknown]
  - Fatigue [Unknown]
  - Asterixis [Unknown]
  - Disorientation [Unknown]
  - Malaise [Unknown]

NARRATIVE: CASE EVENT DATE: 20180418
